FAERS Safety Report 9127620 (Version 1)
Quarter: 2013Q1

REPORT INFORMATION
  Report Type: Spontaneous
  Country: US (occurrence: US)
  Receive Date: 20130228
  Receipt Date: 20130228
  Transmission Date: 20140127
  Serious: No
  Sender: FDA-Public Use
  Company Number: US-GLAXOSMITHKLINE-A0988100A

PATIENT
  Sex: Male

DRUGS (4)
  1. LAMICTAL [Suspect]
     Indication: BIPOLAR DISORDER
     Dosage: 200MG PER DAY
     Route: 048
  2. SEROQUEL [Suspect]
     Dosage: 50MG PER DAY
     Route: 048
  3. DEPAKOTE [Concomitant]
  4. VITAMINS [Concomitant]

REACTIONS (4)
  - Penis disorder [Not Recovered/Not Resolved]
  - Psychosexual disorder [Unknown]
  - Tremor [Unknown]
  - Dizziness [Unknown]
